FAERS Safety Report 9454480 (Version 3)
Quarter: 2013Q4

REPORT INFORMATION
  Report Type: Spontaneous
  Country: US (occurrence: US)
  Receive Date: 20130812
  Receipt Date: 20131104
  Transmission Date: 20140711
  Serious: Yes (Hospitalization)
  Sender: FDA-Public Use
  Company Number: US-GLAXOSMITHKLINE-A1001405A

PATIENT
  Age: 58 Year
  Sex: Female
  Weight: 159.1 kg

DRUGS (2)
  1. AVANDIA [Suspect]
     Indication: DIABETES MELLITUS
     Route: 048
     Dates: start: 20050331, end: 200702
  2. AVANDAMET [Suspect]
     Indication: DIABETES MELLITUS
     Route: 048
     Dates: start: 20041119, end: 20050330

REACTIONS (2)
  - Myocardial infarction [Not Recovered/Not Resolved]
  - Angina pectoris [Unknown]
